FAERS Safety Report 7255554-7 (Version None)
Quarter: 2011Q1

REPORT INFORMATION
  Report Type: 
  Country: None (occurrence: None)
  Receive Date: 20110129
  Receipt Date: 20100407
  Transmission Date: 20110831
  Serious: No
  Sender: FDA-Public Use
  Company Number: US-ABBOTT-10P-163-0637083-00

PATIENT
  Sex: Female
  Weight: 46.308 kg

DRUGS (5)
  1. HUMIRA [Suspect]
     Indication: RHEUMATOID ARTHRITIS
     Dates: start: 20100406
  2. NEXIUM [Concomitant]
     Indication: GASTRIC DISORDER
  3. PREDNISONE [Concomitant]
     Indication: RHEUMATOID ARTHRITIS
  4. CLARITIN [Concomitant]
     Indication: HYPERSENSITIVITY
  5. CLINORIL [Concomitant]
     Indication: RHEUMATOID ARTHRITIS

REACTIONS (3)
  - NAUSEA [None]
  - DIZZINESS [None]
  - HEADACHE [None]
